FAERS Safety Report 5298525-2 (Version None)
Quarter: 2007Q2

REPORT INFORMATION
  Report Type: 
  Country: None (occurrence: None)
  Receive Date: 20070409
  Receipt Date: 20070322
  Transmission Date: 20071010
  Serious: Yes (Other)
  Sender: FDA-Public Use
  Company Number: 231784K07USA

PATIENT
  Age: 47 Year
  Sex: Female
  Weight: 48.9885 kg

DRUGS (1)
  1. REBIF [Suspect]
     Indication: MULTIPLE SCLEROSIS
     Dosage: 44 MCG, 3 IN 1 WEEKS, SUBCUTANEOUS
     Route: 058
     Dates: start: 20060801, end: 20061101

REACTIONS (3)
  - ANXIETY [None]
  - CONVULSION [None]
  - DISORIENTATION [None]
